FAERS Safety Report 24812166 (Version 1)
Quarter: 2025Q1

REPORT INFORMATION
  Report Type: Spontaneous
  Country: US (occurrence: None)
  Receive Date: 20250106
  Receipt Date: 20250106
  Transmission Date: 20250409
  Serious: Yes (Disabling)
  Sender: FDA-CTU
  Company Number: None

PATIENT
  Age: 74 Year
  Sex: Female
  Weight: 58.5 kg

DRUGS (5)
  1. PROLIA [Suspect]
     Active Substance: DENOSUMAB
     Indication: Osteoporosis
  2. KEPPRA [Concomitant]
     Active Substance: LEVETIRACETAM
  3. NADOLOL [Concomitant]
     Active Substance: NADOLOL
  4. MENOSTAR [Concomitant]
     Active Substance: ESTRADIOL
  5. PROLIA [Concomitant]
     Active Substance: DENOSUMAB

REACTIONS (2)
  - Arthralgia [None]
  - Pain [None]

NARRATIVE: CASE EVENT DATE: 20241218
